FAERS Safety Report 24232090 (Version 2)
Quarter: 2024Q3

REPORT INFORMATION
  Report Type: Report from Study
  Country: US (occurrence: US)
  Receive Date: 20240821
  Receipt Date: 20240823
  Transmission Date: 20241017
  Serious: Yes (Hospitalization, Other)
  Sender: ROCHE
  Company Number: US-ROCHE-10000053671

PATIENT
  Age: 54 Year
  Sex: Female
  Weight: 66.67 kg

DRUGS (10)
  1. OCREVUS [Suspect]
     Active Substance: OCRELIZUMAB
     Indication: Multiple sclerosis
     Dosage: MORE DOSAGE INFORMATION IS 300 MG SINGLE-USE VIAL.
     Route: 042
     Dates: start: 201810
  2. PRIVIGEN [Suspect]
     Active Substance: HUMAN IMMUNOGLOBULIN G
     Indication: Immunodeficiency
     Dosage: FIVE, 5MG VIALS
     Route: 042
     Dates: end: 2024
  3. SYNTHROID [Concomitant]
     Active Substance: LEVOTHYROXINE SODIUM
     Dates: start: 2010
  4. SERTRALINE [Concomitant]
     Active Substance: SERTRALINE HYDROCHLORIDE
     Indication: Depression
     Dates: start: 2000
  5. CLONAZEPAM [Concomitant]
     Active Substance: CLONAZEPAM
     Indication: Anxiety
     Dates: start: 2000
  6. LORAZEPAM [Concomitant]
     Active Substance: LORAZEPAM
     Indication: Anxiety
     Dates: start: 2000
  7. ELIQUIS [Concomitant]
     Active Substance: APIXABAN
     Indication: Thrombosis
     Dates: start: 202202, end: 202203
  8. TYLENOL [Concomitant]
     Active Substance: ACETAMINOPHEN
  9. CORTISONE [Concomitant]
     Active Substance: CORTISONE
  10. CODEINE [Concomitant]
     Active Substance: CODEINE

REACTIONS (13)
  - Thrombosis [Recovered/Resolved]
  - Pulmonary fibrosis [Unknown]
  - Pneumonia [Recovered/Resolved]
  - COVID-19 [Recovered/Resolved]
  - Vomiting [Recovered/Resolved]
  - Weight decreased [Recovered/Resolved]
  - Heart rate increased [Recovered/Resolved]
  - Infusion related reaction [Recovered/Resolved]
  - Tremor [Recovered/Resolved]
  - Chest pain [Recovered/Resolved]
  - Inflammation [Recovered/Resolved]
  - Fall [Unknown]
  - Pain [Unknown]

NARRATIVE: CASE EVENT DATE: 20211201
